FAERS Safety Report 4797452-4 (Version None)
Quarter: 2005Q4

REPORT INFORMATION
  Report Type: 
  Country: None (occurrence: None)
  Receive Date: 20051006
  Receipt Date: 20051006
  Transmission Date: 20060501
  Serious: Yes (Life-Threatening, Hospitalization)
  Sender: FDA-Public Use
  Company Number: None

PATIENT
  Age: 74 Year
  Sex: Female

DRUGS (6)
  1. TAMOXIFEN [Suspect]
     Indication: BREAST CANCER
     Dosage: 20 MG PO QD   APPROXIMATELY 4 YRS
     Route: 048
  2. PROPRANOLOL [Concomitant]
  3. LEVOTHYROXINE [Concomitant]
  4. ISOSORBIDE [Concomitant]
  5. LANSOPRAZOLE [Concomitant]
  6. RALOXEFEN [Concomitant]

REACTIONS (5)
  - DEEP VEIN THROMBOSIS [None]
  - DYSPNOEA [None]
  - PANCYTOPENIA [None]
  - PULMONARY EMBOLISM [None]
  - PULMONARY HYPERTENSION [None]
